FAERS Safety Report 13087638 (Version 1)
Quarter: 2017Q1

REPORT INFORMATION
  Report Type: Spontaneous
  Country: US (occurrence: US)
  Receive Date: 20170105
  Receipt Date: 20170105
  Transmission Date: 20170428
  Serious: Yes (Other)
  Sender: FDA-Public Use
  Company Number: US-BAYER-2016-246066

PATIENT
  Age: 88 Year
  Sex: Female
  Weight: 68 kg

DRUGS (4)
  1. TRAMADOL. [Concomitant]
     Active Substance: TRAMADOL
  2. MIRALAX [Suspect]
     Active Substance: POLYETHYLENE GLYCOL 3350
     Indication: GASTROINTESTINAL DISORDER
     Dosage: 1 DF, QD
     Route: 048
     Dates: end: 20161228
  3. OPIOIDS [Concomitant]
     Active Substance: UNSPECIFIED INGREDIENT
  4. STOOL SOFTENER (DOCUSATE CALCIUM) [Concomitant]
     Active Substance: DOCUSATE CALCIUM

REACTIONS (4)
  - Discomfort [Not Recovered/Not Resolved]
  - Product use issue [Unknown]
  - Drug dependence [Unknown]
  - Flatulence [Not Recovered/Not Resolved]
